FAERS Safety Report 10055512 (Version 1)
Quarter: 2014Q2

REPORT INFORMATION
  Report Type: Spontaneous
  Country: GB (occurrence: GB)
  Receive Date: 20140403
  Receipt Date: 20140403
  Transmission Date: 20141212
  Serious: Yes (Other)
  Sender: FDA-Public Use
  Company Number: GB-ACCORD-022706

PATIENT
  Age: 44 Year
  Sex: Female
  Weight: 120 kg

DRUGS (6)
  1. BACLOFEN [Concomitant]
  2. MONTELUKAST [Concomitant]
  3. LOSARTAN [Concomitant]
  4. GAVISCON ADVANCE [Concomitant]
  5. AMLODIPINE [Suspect]
     Indication: HYPERTENSION
     Route: 048
     Dates: start: 201306, end: 201403
  6. LANSOPRAZOLE [Concomitant]

REACTIONS (11)
  - Peripheral swelling [Unknown]
  - Discomfort [Unknown]
  - Peripheral swelling [Unknown]
  - Skin discolouration [Unknown]
  - Paraesthesia [Unknown]
  - Joint swelling [Unknown]
  - Rash [Unknown]
  - Mobility decreased [Unknown]
  - Feeling hot [Unknown]
  - Feeling abnormal [Unknown]
  - Pain [Unknown]
